FAERS Safety Report 17395350 (Version 1)
Quarter: 2020Q1

REPORT INFORMATION
  Report Type: Spontaneous
  Country: DE (occurrence: DE)
  Receive Date: 20200210
  Receipt Date: 20200210
  Transmission Date: 20200409
  Serious: Yes (Other)
  Sender: FDA-Public Use
  Company Number: DE-AMGEN-DEUSP2020019208

PATIENT
  Sex: Female

DRUGS (3)
  1. BEVACIZUMAB. [Concomitant]
     Active Substance: BEVACIZUMAB
     Dosage: 10 MILLIGRAM/KILOGRAM
     Route: 042
     Dates: start: 201911, end: 202001
  2. XGEVA [Suspect]
     Active Substance: DENOSUMAB
     Indication: BREAST CANCER
     Dosage: UNK
     Route: 065
     Dates: start: 201706
  3. CAPECITABINE. [Suspect]
     Active Substance: CAPECITABINE
     Indication: BREAST CANCER
     Dosage: UNK
     Route: 048
     Dates: start: 201911, end: 202001

REACTIONS (2)
  - Malignant neoplasm progression [Unknown]
  - Breast cancer [Unknown]

NARRATIVE: CASE EVENT DATE: 202001
